FAERS Safety Report 11123753 (Version 2)
Quarter: 2015Q2

REPORT INFORMATION
  Report Type: Spontaneous
  Country: JP (occurrence: JP)
  Receive Date: 20150519
  Receipt Date: 20150521
  Transmission Date: 20150821
  Serious: Yes (Hospitalization)
  Sender: FDA-Public Use
  Company Number: JP-ELI_LILLY_AND_COMPANY-JP201505005195

PATIENT
  Age: 73 Year
  Sex: Female
  Weight: 59 kg

DRUGS (4)
  1. INSULIN DETEMIR [Concomitant]
     Active Substance: INSULIN DETEMIR
     Indication: DIABETES MELLITUS
     Dosage: UNK
     Route: 058
  2. URSODEOXYCHOLIC ACID [Concomitant]
     Active Substance: URSODIOL
     Route: 048
  3. ITOPRIDE HYDROCHLORIDE [Concomitant]
     Active Substance: ITOPRIDE HYDROCHLORIDE
     Route: 048
  4. GEMZAR [Suspect]
     Active Substance: GEMCITABINE HYDROCHLORIDE
     Indication: PANCREATIC CARCINOMA STAGE IV
     Route: 042

REACTIONS (8)
  - Weight decreased [Not Recovered/Not Resolved]
  - Cholangitis [Unknown]
  - Hypophagia [Recovering/Resolving]
  - Pneumonia aspiration [Unknown]
  - Hepatic encephalopathy [Recovering/Resolving]
  - Non-alcoholic steatohepatitis [Recovering/Resolving]
  - Malnutrition [Recovering/Resolving]
  - Pancytopenia [Unknown]
